FAERS Safety Report 7220119-X (Version None)
Quarter: 2011Q1

REPORT INFORMATION
  Report Type: 
  Country: None (occurrence: None)
  Receive Date: 20110111
  Receipt Date: 20101230
  Transmission Date: 20110831
  Serious: Yes (Other)
  Sender: FDA-Public Use
  Company Number: PHHY2010IT89485

PATIENT
  Sex: Female

DRUGS (1)
  1. AMOXICILLIN [Suspect]
     Dosage: 2 POSOLOGICAL UNITS, DAILY
     Route: 048
     Dates: start: 20100701, end: 20100701

REACTIONS (3)
  - STOMATITIS [None]
  - ORAL HERPES [None]
  - TONGUE OEDEMA [None]
